FAERS Safety Report 24293828 (Version 1)
Quarter: 2024Q3

REPORT INFORMATION
  Report Type: Spontaneous
  Country: US (occurrence: None)
  Receive Date: 20240906
  Receipt Date: 20240906
  Transmission Date: 20241017
  Serious: No
  Sender: DOMPE FARMACEUTICI
  Company Number: US-FARMAPROD-202308-202403-0714

PATIENT
  Sex: Male
  Weight: 95.25 kg

DRUGS (20)
  1. OXERVATE [Suspect]
     Active Substance: CENEGERMIN-BKBJ
     Indication: Neurotrophic keratopathy
     Route: 047
     Dates: start: 20240212
  2. HYDROXYCHLOROQUINE SULFATE [Concomitant]
     Active Substance: HYDROXYCHLOROQUINE SULFATE
  3. IVIZIA [Concomitant]
     Active Substance: POVIDONE
  4. LOTEMAX [Concomitant]
     Active Substance: LOTEPREDNOL ETABONATE
  5. DAPSONE [Concomitant]
     Active Substance: DAPSONE
  6. ISOSORBIDE MONONITRATE [Concomitant]
     Active Substance: ISOSORBIDE MONONITRATE
  7. CLOPIDOGREL [Concomitant]
     Active Substance: CLOPIDOGREL BISULFATE
  8. RITUXAN [Concomitant]
     Active Substance: RITUXIMAB
     Dosage: VIAL
  9. ASPIRIN [Concomitant]
     Active Substance: ASPIRIN
  10. ROSUVASTATIN CALCIUM [Concomitant]
     Active Substance: ROSUVASTATIN CALCIUM
  11. PROCRIT [Concomitant]
     Active Substance: ERYTHROPOIETIN
  12. EDARBI [Concomitant]
     Active Substance: AZILSARTAN KAMEDOXOMIL
  13. AMLODIPINE BESYLATE [Concomitant]
     Active Substance: AMLODIPINE BESYLATE
  14. FEBUXOSTAT [Concomitant]
     Active Substance: FEBUXOSTAT
  15. CALCITRIOL [Concomitant]
     Active Substance: CALCITRIOL
  16. METHENAMINE HIPPURATE [Concomitant]
     Active Substance: METHENAMINE HIPPURATE
  17. ERGOCALCIFEROL [Concomitant]
     Active Substance: ERGOCALCIFEROL
  18. BUMETANIDE [Concomitant]
     Active Substance: BUMETANIDE
  19. PREDNISONE [Concomitant]
     Active Substance: PREDNISONE
  20. HYDROXYCHLOROQUINE SULFATE [Concomitant]
     Active Substance: HYDROXYCHLOROQUINE SULFATE

REACTIONS (3)
  - Vision blurred [Unknown]
  - Visual impairment [Unknown]
  - Eye infection [Unknown]
